FAERS Safety Report 6232012-X (Version None)
Quarter: 2009Q2

REPORT INFORMATION
  Report Type: 
  Country: None (occurrence: None)
  Receive Date: 20090612
  Receipt Date: 20090603
  Transmission Date: 20091009
  Serious: Yes (Hospitalization)
  Sender: FDA-Public Use
  Company Number: IT-WYE-H09031409

PATIENT
  Age: 85 Year
  Sex: Female

DRUGS (12)
  1. CORDARONE [Suspect]
     Indication: ATRIAL FIBRILLATION
     Dosage: 200 MG 1X PER 1 DAY ORAL
     Route: 048
     Dates: start: 20090123, end: 20090318
  2. SIMVASTATIN [Suspect]
     Indication: ACUTE MYOCARDIAL INFARCTION
     Dosage: 20 MG 1X PER 1 DAY ORAL
     Route: 048
     Dates: start: 20090302, end: 20090315
  3. SIMVASTATIN [Suspect]
     Indication: DYSLIPIDAEMIA
     Dosage: 20 MG 1X PER 1 DAY ORAL
     Route: 048
     Dates: start: 20090302, end: 20090315
  4. ATORVASTATIN CALCIUM [Suspect]
     Indication: ACUTE MYOCARDIAL INFARCTION
     Dosage: 20 MG 1X PER 1 DAY ORAL ; 40 MG 1X PER 1 DAY ORAL
     Route: 048
     Dates: start: 20090122, end: 20090130
  5. ATORVASTATIN CALCIUM [Suspect]
     Indication: DYSLIPIDAEMIA
     Dosage: 20 MG 1X PER 1 DAY ORAL ; 40 MG 1X PER 1 DAY ORAL
     Route: 048
     Dates: start: 20090122, end: 20090130
  6. ATORVASTATIN CALCIUM [Suspect]
     Indication: ACUTE MYOCARDIAL INFARCTION
     Dosage: 20 MG 1X PER 1 DAY ORAL ; 40 MG 1X PER 1 DAY ORAL
     Route: 048
     Dates: start: 20090131, end: 20090301
  7. ATORVASTATIN CALCIUM [Suspect]
     Indication: DYSLIPIDAEMIA
     Dosage: 20 MG 1X PER 1 DAY ORAL ; 40 MG 1X PER 1 DAY ORAL
     Route: 048
     Dates: start: 20090131, end: 20090301
  8. ZOFENOPRIL CALCIUM (ZOFENOPRIL CALCIUM) [Concomitant]
  9. LASIX [Concomitant]
  10. KANRENOL (POTASSIUM CANRENOATE) [Concomitant]
  11. OMEPRAZOLE [Concomitant]
  12. ALLOPURINOL [Concomitant]

REACTIONS (6)
  - ALANINE AMINOTRANSFERASE INCREASED [None]
  - ASPARTATE AMINOTRANSFERASE INCREASED [None]
  - BLOOD CREATINE PHOSPHOKINASE INCREASED [None]
  - GAIT DISTURBANCE [None]
  - MUSCULAR WEAKNESS [None]
  - MYALGIA [None]
